FAERS Safety Report 24637195 (Version 4)
Quarter: 2025Q2

REPORT INFORMATION
  Report Type: Spontaneous
  Country: CH (occurrence: CH)
  Receive Date: 20241119
  Receipt Date: 20250512
  Transmission Date: 20250717
  Serious: Yes (Other)
  Sender: ROCHE
  Company Number: CH-ROCHE-10000128313

PATIENT
  Age: 84 Year
  Sex: Male

DRUGS (9)
  1. HEMLIBRA [Suspect]
     Active Substance: EMICIZUMAB-KXWH
     Indication: Acquired haemophilia
     Dosage: FOR 6 WEEKS
     Route: 065
     Dates: start: 20241014
  2. RITUXIMAB [Suspect]
     Active Substance: RITUXIMAB
     Indication: Acquired haemophilia
     Dosage: FOR 4 WEEK
     Route: 065
     Dates: start: 20241018
  3. CYCLOPHOSPHAMIDE [Concomitant]
     Active Substance: CYCLOPHOSPHAMIDE
     Dosage: FOR 3 WEEKS, THEN REDUCED TO 50 MG/D
  4. COLISTIN [Concomitant]
     Active Substance: COLISTIN
  5. AMPICILLIN SODIUM\SULBACTAM SODIUM [Concomitant]
     Active Substance: AMPICILLIN SODIUM\SULBACTAM SODIUM
     Dates: start: 20241005, end: 20241008
  6. CEFIDEROCOL [Concomitant]
     Active Substance: CEFIDEROCOL
     Dates: start: 20241005, end: 20241017
  7. TIGECYCLINE [Concomitant]
     Active Substance: TIGECYCLINE
     Dates: start: 20241005, end: 20241017
  8. NOVOSEVEN [Concomitant]
     Active Substance: COAGULATION FACTOR VIIA RECOMBINANT HUMAN
  9. PREDNISONE [Concomitant]
     Active Substance: PREDNISONE
     Dosage: (IN PROCESS OF SLOW TAPERING, CURRENTLY 7.5 MG/D)
     Dates: start: 20241009

REACTIONS (2)
  - Weight decreased [Recovered/Resolved]
  - Neutropenia [Recovered/Resolved]

NARRATIVE: CASE EVENT DATE: 20241126
